FAERS Safety Report 7542516-5 (Version None)
Quarter: 2011Q2

REPORT INFORMATION
  Report Type: 
  Country: None (occurrence: None)
  Receive Date: 20110613
  Receipt Date: 20110603
  Transmission Date: 20111010
  Serious: Yes (Death, Hospitalization)
  Sender: FDA-Public Use
  Company Number: DE-ALEXION-A201100794

PATIENT
  Sex: Female

DRUGS (2)
  1. AMPICILLINE GNR [Concomitant]
     Indication: ANTIBIOTIC PROPHYLAXIS
     Dosage: 2 G, 1HR PRIOR TO INFUSION
     Dates: start: 20110531, end: 20110531
  2. SOLIRIS [Suspect]
     Indication: HAEMOLYTIC URAEMIC SYNDROME
     Dosage: 900 MG, SINGLE
     Route: 042
     Dates: start: 20110531, end: 20110531

REACTIONS (3)
  - SEPSIS [None]
  - MULTI-ORGAN FAILURE [None]
  - ENTEROCOLITIS BACTERIAL [None]
